FAERS Safety Report 6275385-4 (Version None)
Quarter: 2009Q3

REPORT INFORMATION
  Report Type: 
  Country: None (occurrence: None)
  Receive Date: 20090721
  Receipt Date: 20090708
  Transmission Date: 20100115
  Serious: Yes (Hospitalization)
  Sender: FDA-Public Use
  Company Number: ES-ELI_LILLY_AND_COMPANY-ES200907001699

PATIENT
  Age: 72 Year
  Sex: Female

DRUGS (3)
  1. FORTEO [Suspect]
     Indication: OSTEOPOROSIS
     Dosage: 20 UG, UNKNOWN
     Route: 058
     Dates: start: 20081001, end: 20090701
  2. CORTICOSTEROIDS [Concomitant]
     Indication: ARTHRITIS
     Dates: end: 20090701
  3. SINTROM [Concomitant]

REACTIONS (3)
  - FLUID RETENTION [None]
  - PULMONARY OEDEMA [None]
  - TACHYCARDIA [None]
